FAERS Safety Report 6138050-X (Version None)
Quarter: 2009Q1

REPORT INFORMATION
  Report Type: 
  Country: None (occurrence: None)
  Receive Date: 20090331
  Receipt Date: 20090323
  Transmission Date: 20090719
  Serious: Yes (Other)
  Sender: FDA-Public Use
  Company Number: US-ASTRAZENECA-2009UW07419

PATIENT
  Age: 13845 Day
  Sex: Male

DRUGS (1)
  1. PRILOSEC [Suspect]
     Indication: EROSIVE OESOPHAGITIS
     Route: 048
     Dates: start: 20090123

REACTIONS (2)
  - COUGH [None]
  - HAEMATEMESIS [None]
